FAERS Safety Report 7378134-1 (Version None)
Quarter: 2011Q1

REPORT INFORMATION
  Report Type: 
  Country: None (occurrence: None)
  Receive Date: 20110328
  Receipt Date: 20110321
  Transmission Date: 20110831
  Serious: Yes (Hospitalization, Congenital Anomaly, Other)
  Sender: FDA-Public Use
  Company Number: US-PFIZER INC-2010092576

PATIENT
  Sex: Female
  Weight: 2.585 kg

DRUGS (6)
  1. PROMETHAZINE [Concomitant]
     Indication: NAUSEA
     Dosage: 25 MG, HALF TO ONE TABLET EVERY 4 HRS AS NEEDED
     Dates: start: 20050120
  2. ZOLOFT [Suspect]
     Dosage: UNK
     Route: 064
  3. LEXAPRO [Concomitant]
     Indication: DEPRESSION
  4. PROMETHAZINE [Concomitant]
     Dosage: 25 MG, HALF TO ONE, EVERY 4 HRS AS NEEDED
     Dates: start: 20050120
  5. LEXAPRO [Concomitant]
     Indication: ANXIETY
     Dosage: UNK
     Route: 064
  6. PRENATAL VITAMINS [Concomitant]
     Dosage: DAILY
     Route: 064

REACTIONS (13)
  - FEMALE GENITAL TRACT FISTULA [None]
  - OVARIAN GERM CELL TERATOMA BENIGN [None]
  - GASTROINTESTINAL MALFORMATION [None]
  - BLOOD GLUCOSE INCREASED [None]
  - DRUG EXPOSURE DURING PREGNANCY [None]
  - SINGLE FUNCTIONAL KIDNEY [None]
  - CONGENITAL LARGE INTESTINAL ATRESIA [None]
  - PYELONEPHRITIS [None]
  - UMBILICAL CORD ABNORMALITY [None]
  - CONGENITAL HYDRONEPHROSIS [None]
  - VESICOURETERIC REFLUX [None]
  - CONGENITAL CYSTIC KIDNEY DISEASE [None]
  - ANAL ATRESIA [None]
